FAERS Safety Report 17590935 (Version 1)
Quarter: 2020Q1

REPORT INFORMATION
  Report Type: Spontaneous
  Country: US (occurrence: US)
  Receive Date: 20200325
  Receipt Date: 20200325
  Transmission Date: 20200409
  Serious: Yes (Hospitalization)
  Sender: FDA-Public Use
  Company Number: None

PATIENT
  Age: 64 Year
  Sex: Female
  Weight: 62 kg

DRUGS (1)
  1. SMZ-TMP-DS 800-160 [Suspect]
     Active Substance: SULFAMETHOXAZOLE\TRIMETHOPRIM
     Indication: TOOTH DISORDER
     Dosage: ?          OTHER STRENGTH:800-160;OTHER DOSE:1 TABLET;?
     Route: 048
     Dates: start: 20200321, end: 20200322

REACTIONS (2)
  - Pain in extremity [None]
  - Abdominal pain [None]

NARRATIVE: CASE EVENT DATE: 20200322
